FAERS Safety Report 20043536 (Version 2)
Quarter: 2021Q4

REPORT INFORMATION
  Report Type: Spontaneous
  Country: IN (occurrence: IN)
  Receive Date: 20211108
  Receipt Date: 20211125
  Transmission Date: 20220303
  Serious: Yes (Life-Threatening, Hospitalization)
  Sender: FDA-Public Use
  Company Number: IN-TORRENT-00002947

PATIENT
  Age: 61 Year
  Sex: Male

DRUGS (9)
  1. ESOMEPRAZOLE [Suspect]
     Active Substance: ESOMEPRAZOLE
     Indication: Product used for unknown indication
     Dosage: BD (TWICE A DAY)
     Route: 042
  2. DYTOR PLUS 10/50 [Concomitant]
     Indication: Product used for unknown indication
     Dosage: 1-0-0
  3. ONDANSETRON HYDROCHLORIDE [Concomitant]
     Active Substance: ONDANSETRON HYDROCHLORIDE
     Indication: Product used for unknown indication
     Dosage: 3 TIMES DAILY (TDS)
     Route: 042
  4. Looz enema [Concomitant]
     Indication: Product used for unknown indication
     Dosage: TWICE A DAY (BD)
  5. Zostum 1.5 mg [Concomitant]
     Indication: Product used for unknown indication
     Dosage: BD (TWICE A DAY)
     Route: 042
  6. NS/RL+MVI [Concomitant]
     Indication: Product used for unknown indication
     Route: 042
  7. LOOZ [Concomitant]
     Indication: Product used for unknown indication
  8. RIFAXIMIN [Concomitant]
     Active Substance: RIFAXIMIN
     Indication: Product used for unknown indication
     Dosage: BD (TWICE A DAY)
  9. NLS pro [Concomitant]
     Indication: Product used for unknown indication
     Dosage: 40 MG BD
     Route: 042

REACTIONS (1)
  - Hypoglycaemia [Recovered/Resolved]

NARRATIVE: CASE EVENT DATE: 20211019
